FAERS Safety Report 10158122 (Version 1)
Quarter: 2014Q2

REPORT INFORMATION
  Report Type: Spontaneous
  Country: US (occurrence: US)
  Receive Date: 20140507
  Receipt Date: 20140507
  Transmission Date: 20141212
  Serious: Yes (Other)
  Sender: FDA-Public Use
  Company Number: US-WATSON-2014-09214

PATIENT
  Age: 44 Year
  Sex: Male

DRUGS (2)
  1. BUPROPION HYDROCHLORIDE (WATSON LABORATORIES) [Suspect]
     Indication: DEPRESSION
     Dosage: UP TO 7 TABLETS OF 300 MG (2,100 MG TOTAL/DAY)
     Route: 045
  2. BUPRENORPHINE W/NALOXONE [Concomitant]
     Indication: DRUG DEPENDENCE
     Dosage: UNKNOWN
     Route: 065

REACTIONS (7)
  - Paranoia [Recovered/Resolved]
  - Hypoaesthesia [Recovered/Resolved]
  - Malaise [Recovered/Resolved]
  - Decreased appetite [Recovered/Resolved]
  - Epistaxis [Recovered/Resolved]
  - Drug abuse [Recovered/Resolved]
  - Incorrect route of drug administration [Recovered/Resolved]
